FAERS Safety Report 20114109 (Version 1)
Quarter: 2021Q4

REPORT INFORMATION
  Report Type: Report from Study
  Country: BR (occurrence: BR)
  Receive Date: 20211125
  Receipt Date: 20211125
  Transmission Date: 20220303
  Serious: Yes (Hospitalization)
  Sender: FDA-Public Use
  Company Number: BR-JNJFOC-20211140872

PATIENT
  Age: 58 Year
  Sex: Female

DRUGS (2)
  1. SIMPONI [Suspect]
     Active Substance: GOLIMUMAB
     Indication: Rheumatoid arthritis
     Route: 058
     Dates: start: 20180126, end: 20210404
  2. TOCILIZUMAB [Suspect]
     Active Substance: TOCILIZUMAB

REACTIONS (5)
  - Erysipelas [Unknown]
  - Thrombosis [Unknown]
  - Renal disorder [Unknown]
  - COVID-19 [Unknown]
  - Urinary tract infection [Recovered/Resolved]
